FAERS Safety Report 8997515 (Version 6)
Quarter: 2013Q2

REPORT INFORMATION
  Report Type: Spontaneous
  Country: US (occurrence: US)
  Receive Date: 20130104
  Receipt Date: 20130515
  Transmission Date: 20140414
  Serious: Yes (Life-Threatening, Hospitalization, Other)
  Sender: FDA-Public Use
  Company Number: US-ACTELION-A-US2013-77143

PATIENT
  Age: 40 Year
  Sex: Female

DRUGS (3)
  1. VENTAVIS [Suspect]
     Indication: PULMONARY ARTERIAL HYPERTENSION
     Dosage: UNK
     Route: 055
  2. LETAIRIS [Suspect]
     Indication: PULMONARY ARTERIAL HYPERTENSION
     Dosage: 10 MG, UNK
     Dates: start: 20100401
  3. ADCIRCA [Concomitant]

REACTIONS (7)
  - Life support [Unknown]
  - Cardiac operation [Unknown]
  - Cardiac procedure complication [Unknown]
  - Congenital cardiovascular anomaly [Unknown]
  - Blood pressure decreased [Unknown]
  - Cough [Unknown]
  - Drug dose omission [Unknown]
